FAERS Safety Report 5009880-2 (Version None)
Quarter: 2006Q2

REPORT INFORMATION
  Report Type: 
  Country: None (occurrence: None)
  Receive Date: 20060524
  Receipt Date: 20060513
  Transmission Date: 20061013
  Serious: Yes (Hospitalization)
  Sender: FDA-Public Use
  Company Number: BR-NOVOPROD-253382

PATIENT
  Age: 84 Year
  Sex: Male

DRUGS (1)
  1. LEVEMIR [Suspect]
     Indication: DIABETES MELLITUS
     Dosage: 29 IU, QD

REACTIONS (4)
  - FALL [None]
  - HYPERGLYCAEMIA [None]
  - HYPERTENSION [None]
  - URINARY TRACT INFECTION [None]
